FAERS Safety Report 4667942-3 (Version None)
Quarter: 2005Q2

REPORT INFORMATION
  Report Type: 
  Country: None (occurrence: None)
  Receive Date: 20050519
  Receipt Date: 20050517
  Transmission Date: 20051028
  Serious: Yes (Other)
  Sender: FDA-Public Use
  Company Number: CH-SHR-04-022683

PATIENT
  Sex: Female

DRUGS (2)
  1. MIRENA [Suspect]
     Indication: CONTRACEPTION
     Dosage: 20 UG, INTRA-UTERINE
     Route: 015
  2. ANTIEPILEPTICS [Concomitant]

REACTIONS (1)
  - EPILEPSY [None]
